FAERS Safety Report 23916706 (Version 1)
Quarter: 2024Q2

REPORT INFORMATION
  Report Type: Report from Study
  Country: CA (occurrence: CA)
  Receive Date: 20240529
  Receipt Date: 20240529
  Transmission Date: 20240715
  Serious: Yes (Other)
  Sender: FDA-Public Use
  Company Number: CA-SANDOZ-SDZ2023CA017748

PATIENT
  Sex: Male

DRUGS (2)
  1. ERELZI [Suspect]
     Active Substance: ETANERCEPT-SZZS
     Dosage: 50 MG DOSING FREQUENCY: WEEKLY;NULL
     Route: 058
     Dates: start: 20220130
  2. ERELZI [Suspect]
     Active Substance: ETANERCEPT-SZZS
     Indication: Ankylosing spondylitis
     Dosage: 50 MG
     Route: 058
     Dates: start: 20220130

REACTIONS (5)
  - Peripheral artery occlusion [Unknown]
  - Neoplasm malignant [Unknown]
  - Pain in extremity [Unknown]
  - Mobility decreased [Unknown]
  - Speech disorder [Unknown]
